FAERS Safety Report 5844551-1 (Version None)
Quarter: 2008Q3

REPORT INFORMATION
  Report Type: 
  Country: None (occurrence: None)
  Receive Date: 20080814
  Receipt Date: 20080811
  Transmission Date: 20090109
  Serious: Yes (Hospitalization)
  Sender: FDA-Public Use
  Company Number: PHHO2002DE04114

PATIENT
  Sex: Female
  Weight: 58 kg

DRUGS (4)
  1. EXELON EXELON+CAP [Suspect]
     Indication: DEMENTIA ALZHEIMER'S TYPE
     Dosage: UNSPECIFIED
     Route: 048
     Dates: start: 20020326, end: 20020506
  2. METOBETA [Concomitant]
     Indication: HYPERTENSION
     Dates: start: 19900601
  3. LEVOTHYROXINE SODIUM [Concomitant]
     Indication: GOITRE
     Dates: start: 19800101
  4. ACETYLSALICYLIC ACID SRT [Concomitant]
     Dates: start: 19991201

REACTIONS (4)
  - ANOREXIA [None]
  - CIRCULATORY COLLAPSE [None]
  - DEHYDRATION [None]
  - NAUSEA [None]
